FAERS Safety Report 17802562 (Version 1)
Quarter: 2020Q2

REPORT INFORMATION
  Report Type: Spontaneous
  Country: US (occurrence: US)
  Receive Date: 20200519
  Receipt Date: 20200519
  Transmission Date: 20200714
  Serious: No
  Sender: FDA-Public Use
  Company Number: US-NOVEN PHARMACEUTICALS, INC.-US2020000212

PATIENT

DRUGS (6)
  1. PRODAC [Concomitant]
     Indication: AUTISM SPECTRUM DISORDER
     Dosage: 90 MG, UNK
  2. DAYTRANA [Suspect]
     Active Substance: METHYLPHENIDATE
     Indication: ATTENTION DEFICIT HYPERACTIVITY DISORDER
     Dosage: UNK
     Route: 062
  3. PRODAC [Concomitant]
     Indication: BEHAVIOUR DISORDER
     Dosage: 10 MG, UNKNOWN
  4. DAYTRANA [Suspect]
     Active Substance: METHYLPHENIDATE
     Dosage: 40 MG (20+20) PER DAY, UNKNOWN
     Route: 062
  5. RISPERIDONE. [Concomitant]
     Active Substance: RISPERIDONE
     Indication: AUTISM SPECTRUM DISORDER
     Dosage: 1.5 MG, UNKNOWN
  6. RISPERIDONE. [Concomitant]
     Active Substance: RISPERIDONE
     Indication: BEHAVIOUR DISORDER

REACTIONS (3)
  - Off label use [Not Recovered/Not Resolved]
  - No adverse event [Unknown]
  - Therapeutic response unexpected [Unknown]
